FAERS Safety Report 5992812-8 (Version None)
Quarter: 2008Q4

REPORT INFORMATION
  Report Type: 
  Country: None (occurrence: None)
  Receive Date: 20081205
  Receipt Date: 20080915
  Transmission Date: 20090506
  Serious: Yes (Other)
  Sender: FDA-Public Use
  Company Number: APP200800816

PATIENT
  Sex: Male

DRUGS (1)
  1. CEFOTETAN [Suspect]
     Indication: DRUG USE FOR UNKNOWN INDICATION
     Dates: start: 20080101

REACTIONS (1)
  - ANAPHYLACTIC REACTION [None]
